FAERS Safety Report 14273528 (Version 5)
Quarter: 2018Q4

REPORT INFORMATION
  Report Type: Report from Study
  Country: None (occurrence: US)
  Receive Date: 20171212
  Receipt Date: 20181029
  Transmission Date: 20190204
  Serious: Yes (Other)
  Sender: FDA-Public Use
  Company Number: US-ABBVIE-16K-163-1808248-00

PATIENT
  Age: 67 Year
  Sex: Female

DRUGS (2)
  1. HUMIRA [Suspect]
     Active Substance: ADALIMUMAB
     Indication: UVEITIS
     Route: 058
  2. HUMIRA [Suspect]
     Active Substance: ADALIMUMAB
     Indication: RHEUMATOID ARTHRITIS

REACTIONS (11)
  - Corneal graft rejection [Recovered/Resolved]
  - Corneal transplant [Recovering/Resolving]
  - Eye inflammation [Unknown]
  - Corneal transplant [Unknown]
  - Transplant dysfunction [Unknown]
  - Weight increased [Unknown]
  - Cataract operation complication [Unknown]
  - Mobility decreased [Unknown]
  - Glaucoma [Unknown]
  - Cataract [Recovered/Resolved]
  - Corneal transplant [Recovering/Resolving]

NARRATIVE: CASE EVENT DATE: 2016
